FAERS Safety Report 4541047-4 (Version None)
Quarter: 2004Q4

REPORT INFORMATION
  Report Type: 
  Country: None (occurrence: None)
  Receive Date: 20041228
  Receipt Date: 20041220
  Transmission Date: 20050328
  Serious: Yes (Hospitalization)
  Sender: FDA-Public Use
  Company Number: B0362517A

PATIENT
  Sex: Female

DRUGS (2)
  1. PAXIL [Suspect]
     Dosage: 30 MG / PER DAY / TRANSPLACENTARY
     Route: 064
  2. CHLORPROMAZINE HCL [Concomitant]

REACTIONS (14)
  - CAESAREAN SECTION [None]
  - DEPRESSED LEVEL OF CONSCIOUSNESS [None]
  - DRUG EXPOSURE DURING PREGNANCY [None]
  - DRUG EXPOSURE VIA BREAST MILK [None]
  - GENE MUTATION IDENTIFICATION TEST POSITIVE [None]
  - HYPOGLYCAEMIA NEONATAL [None]
  - HYPOTONIA NEONATAL [None]
  - LOOSE STOOLS [None]
  - MECONIUM IN AMNIOTIC FLUID [None]
  - MUSCLE RIGIDITY [None]
  - NEONATAL DISORDER [None]
  - NEONATAL RESPIRATORY DISTRESS SYNDROME [None]
  - SERUM SEROTONIN INCREASED [None]
  - TREMOR NEONATAL [None]
